FAERS Safety Report 4488240-7 (Version None)
Quarter: 2004Q4

REPORT INFORMATION
  Report Type: 
  Country: None (occurrence: None)
  Receive Date: 20041028
  Receipt Date: 20041020
  Transmission Date: 20050328
  Serious: Yes (Hospitalization, Other)
  Sender: FDA-Public Use
  Company Number: PHNU2004DE03579

PATIENT
  Sex: Female

DRUGS (2)
  1. SANDIMMUNE [Suspect]
     Indication: UVEITIS
     Dosage: 225 MG DAILY
     Dates: start: 20040901
  2. PREDNISOLONE [Concomitant]
     Dosage: 40 MG DAILY

REACTIONS (11)
  - BACTERIA URINE [None]
  - CONDITION AGGRAVATED [None]
  - DELUSIONAL DISORDER, UNSPECIFIED TYPE [None]
  - DIABETES MELLITUS [None]
  - HYPERTENSION [None]
  - HYPOKALAEMIA [None]
  - LEUKOCYTOSIS [None]
  - PARANOIA [None]
  - SUPRAVENTRICULAR EXTRASYSTOLES [None]
  - URINARY TRACT INFECTION [None]
  - VENTRICULAR EXTRASYSTOLES [None]
